FAERS Safety Report 6128252-0 (Version None)
Quarter: 2009Q1

REPORT INFORMATION
  Report Type: 
  Country: None (occurrence: None)
  Receive Date: 20090323
  Receipt Date: 20090310
  Transmission Date: 20090719
  Serious: Yes (Other)
  Sender: FDA-Public Use
  Company Number: US-PFIZER INC-2006082126

PATIENT
  Sex: Female
  Weight: 52 kg

DRUGS (12)
  1. PROVERA [Suspect]
     Indication: HORMONE REPLACEMENT THERAPY
     Dosage: 2.5 MG, UNK
     Route: 048
     Dates: start: 19850101, end: 19950101
  2. PROVERA [Suspect]
     Indication: MENOPAUSAL SYMPTOMS
  3. PROVERA [Suspect]
     Indication: HYSTERECTOMY
  4. MEDROXYPROGESTERONE AND MEDROXYPROGESTERONE ACETATE [Suspect]
     Indication: HORMONE REPLACEMENT THERAPY
     Route: 048
  5. OGEN [Suspect]
     Indication: MENOPAUSAL SYMPTOMS
     Dosage: UNK
     Route: 061
     Dates: start: 19910101, end: 19950101
  6. OGEN [Suspect]
     Indication: HYSTERECTOMY
  7. PREMARIN [Suspect]
     Indication: MENOPAUSAL SYMPTOMS
     Dosage: 0.3 MG, UNK
     Dates: start: 19850801, end: 19950101
  8. PREMARIN [Suspect]
     Indication: HYSTERECTOMY
  9. ESTRATEST H.S. [Suspect]
     Indication: MENOPAUSAL SYMPTOMS
     Dosage: 0.625/1.25MG
     Dates: start: 19940101
  10. ESTRATEST H.S. [Suspect]
     Indication: HYSTERECTOMY
  11. PREMPRO [Suspect]
     Indication: MENOPAUSAL SYMPTOMS
     Dosage: UNK
     Dates: start: 19950101, end: 19970101
  12. PREMPRO [Suspect]
     Indication: HYSTERECTOMY

REACTIONS (1)
  - BREAST CANCER FEMALE [None]
